FAERS Safety Report 6913454-3 (Version None)
Quarter: 2010Q3

REPORT INFORMATION
  Report Type: 
  Country: None (occurrence: None)
  Receive Date: 20100804
  Receipt Date: 20100804
  Transmission Date: 20110219
  Serious: No
  Sender: FDA-Public Use
  Company Number: None

PATIENT
  Age: 69 Year
  Sex: Female
  Weight: 51.7101 kg

DRUGS (2)
  1. LEVAQUIN [Suspect]
     Indication: RENAL DISORDER
     Dosage: 1 DAILY
     Dates: start: 20100601, end: 20100605
  2. LEVAQUIN [Suspect]
     Indication: STENT PLACEMENT
     Dosage: 1 DAILY
     Dates: start: 20100601, end: 20100605

REACTIONS (6)
  - DIZZINESS [None]
  - HYPOAESTHESIA [None]
  - HYPOAESTHESIA FACIAL [None]
  - MUSCLE SPASMS [None]
  - MUSCULAR WEAKNESS [None]
  - NAUSEA [None]
